FAERS Safety Report 7632171-8 (Version None)
Quarter: 2011Q3

REPORT INFORMATION
  Report Type: 
  Country: None (occurrence: None)
  Receive Date: 20110725
  Receipt Date: 20110524
  Transmission Date: 20111222
  Serious: Yes (Other)
  Sender: FDA-Public Use
  Company Number: US-BRISTOL-MYERS SQUIBB COMPANY-15773294

PATIENT
  Age: 78 Year
  Sex: Male

DRUGS (1)
  1. COUMADIN [Suspect]
     Dosage: TAKES 1 5MG ALONG WITH HALF OF ANOTHER 5MG TABLET

REACTIONS (5)
  - LETHARGY [None]
  - EPISTAXIS [None]
  - HAEMATOCHEZIA [None]
  - ASTHENIA [None]
  - MOUTH HAEMORRHAGE [None]
